FAERS Safety Report 15009432 (Version 1)
Quarter: 2018Q2

REPORT INFORMATION
  Report Type: Spontaneous
  Country: KP (occurrence: KP)
  Receive Date: 20180614
  Receipt Date: 20180614
  Transmission Date: 20180711
  Serious: Yes (Other)
  Sender: FDA-Public Use
  Company Number: KP-CONCORDIA PHARMACEUTICALS INC.-GSH201806-001977

PATIENT
  Age: 68 Year
  Sex: Female

DRUGS (1)
  1. HYDROXYCHLOROQUINE [Suspect]
     Active Substance: HYDROXYCHLOROQUINE
     Indication: RHEUMATOID ARTHRITIS
     Route: 065

REACTIONS (6)
  - Reading disorder [Recovered/Resolved]
  - Maculopathy [Recovered/Resolved]
  - Retinopathy [Recovered/Resolved]
  - Visual acuity reduced [Recovered/Resolved]
  - Cystoid macular oedema [Recovered/Resolved]
  - Detachment of macular retinal pigment epithelium [Recovered/Resolved]
